FAERS Safety Report 6979697-8 (Version None)
Quarter: 2010Q3

REPORT INFORMATION
  Report Type: 
  Country: None (occurrence: None)
  Receive Date: 20100913
  Receipt Date: 20100902
  Transmission Date: 20110219
  Serious: Yes (Life-Threatening, Hospitalization, Other)
  Sender: FDA-Public Use
  Company Number: US-AMGEN-QUU405329

PATIENT
  Sex: Male
  Weight: 72.6 kg

DRUGS (2)
  1. NPLATE [Suspect]
     Indication: IDIOPATHIC THROMBOCYTOPENIC PURPURA
     Dates: start: 20100122, end: 20100318
  2. CORTICOSTEROIDS [Concomitant]
     Dates: start: 20091221

REACTIONS (3)
  - APLASTIC ANAEMIA [None]
  - HAEMATOLOGICAL MALIGNANCY [None]
  - HOSPITALISATION [None]
